FAERS Safety Report 19718707 (Version 1)
Quarter: 2021Q3

REPORT INFORMATION
  Report Type: Spontaneous
  Country: US (occurrence: US)
  Receive Date: 20210818
  Receipt Date: 20210818
  Transmission Date: 20211014
  Serious: Yes (Hospitalization)
  Sender: FDA-Public Use
  Company Number: None

PATIENT
  Sex: Male
  Weight: 98.93 kg

DRUGS (1)
  1. CARBOPLATIN. [Suspect]
     Active Substance: CARBOPLATIN

REACTIONS (4)
  - Spinal compression fracture [None]
  - Pancytopenia [None]
  - Syncope [None]
  - Fall [None]

NARRATIVE: CASE EVENT DATE: 20210814
